FAERS Safety Report 7336121-3 (Version None)
Quarter: 2011Q1

REPORT INFORMATION
  Report Type: 
  Country: None (occurrence: None)
  Receive Date: 20110307
  Receipt Date: 20110209
  Transmission Date: 20110831
  Serious: No
  Sender: FDA-Public Use
  Company Number: US-B.I. PHARMACEUTICALS,INC./RIDGEFIELD-2011-BP-05353BP

PATIENT
  Sex: Female

DRUGS (10)
  1. FUROSEMIDE [Concomitant]
     Indication: FLUID RETENTION
  2. PLAVIX [Concomitant]
     Indication: STENT PLACEMENT
  3. LASIX [Concomitant]
     Indication: FLUID RETENTION
  4. PRADAXA [Suspect]
     Indication: ATRIAL FIBRILLATION
     Dosage: 300 MG
     Route: 048
     Dates: start: 20110207
  5. CRESTOR [Concomitant]
     Indication: BLOOD CHOLESTEROL
  6. DIGOXIN [Concomitant]
     Indication: CARDIAC DISORDER
  7. COZAAR [Concomitant]
     Indication: BLOOD PRESSURE
  8. LEVOTHYROXINE [Concomitant]
     Indication: HYPOTHYROIDISM
  9. PRADAXA [Suspect]
     Indication: THROMBOSIS
  10. POTASSIUM [Concomitant]
     Indication: SUPPLEMENTATION THERAPY

REACTIONS (4)
  - NASAL DISCOMFORT [None]
  - HEART RATE IRREGULAR [None]
  - BLOOD URINE PRESENT [None]
  - EPISTAXIS [None]
